FAERS Safety Report 7479707-8 (Version None)
Quarter: 2011Q2

REPORT INFORMATION
  Report Type: 
  Country: None (occurrence: None)
  Receive Date: 20110513
  Receipt Date: 20110504
  Transmission Date: 20111010
  Serious: Yes (Hospitalization, Other)
  Sender: FDA-Public Use
  Company Number: US-ASTRAZENECA-2011SE26270

PATIENT
  Age: 67 Year
  Sex: Female

DRUGS (4)
  1. SYMBICORT [Suspect]
     Route: 055
  2. TOPROL-XL [Suspect]
     Route: 048
  3. CRESTOR [Suspect]
     Route: 048
  4. ADVAIR DISKUS 100/50 [Concomitant]

REACTIONS (3)
  - PNEUMONIA [None]
  - PULMONARY MASS [None]
  - LUNG OPERATION [None]
